FAERS Safety Report 7571107-5 (Version None)
Quarter: 2011Q2

REPORT INFORMATION
  Report Type: 
  Country: None (occurrence: None)
  Receive Date: 20110624
  Receipt Date: 20110614
  Transmission Date: 20111010
  Serious: Yes (Death)
  Sender: FDA-Public Use
  Company Number: US-ACTELION-A-NJ2011-50390

PATIENT

DRUGS (3)
  1. TRACLEER [Suspect]
     Indication: PULMONARY ARTERIAL HYPERTENSION
     Dosage: UNK
     Route: 048
     Dates: start: 20050811, end: 20110614
  2. COUMADIN [Concomitant]
  3. ADCIRCA [Concomitant]

REACTIONS (2)
  - RIGHT VENTRICULAR FAILURE [None]
  - CONCOMITANT DISEASE PROGRESSION [None]
